FAERS Safety Report 19929471 (Version 1)
Quarter: 2021Q4

REPORT INFORMATION
  Report Type: Spontaneous
  Country: BR (occurrence: BR)
  Receive Date: 20211007
  Receipt Date: 20211007
  Transmission Date: 20220303
  Serious: Yes (Other)
  Sender: FDA-Public Use
  Company Number: BR-ABBOTT-2021A-1340693

PATIENT
  Sex: Male
  Weight: 22 kg

DRUGS (4)
  1. DEPAKENE [Suspect]
     Active Substance: VALPROIC ACID
     Indication: Seizure
     Dosage: DOSE INCREASED?50 MG/ML
     Route: 048
     Dates: start: 2019
  2. DEPAKENE [Suspect]
     Active Substance: VALPROIC ACID
     Route: 048
     Dates: start: 2020
  3. RIVOTRIL [Concomitant]
     Active Substance: CLONAZEPAM
     Indication: Pyrexia
     Dosage: 2 DROPS, STARTED ALMOST TWO YEARS AGO, TAKES ONLY WHEN HAS FEVER
     Route: 048
     Dates: start: 2019
  4. DIPYRONE [Concomitant]
     Active Substance: DIPYRONE
     Indication: Product used for unknown indication

REACTIONS (5)
  - Anticonvulsant drug level decreased [Unknown]
  - Product use issue [Unknown]
  - Wrong technique in product usage process [Unknown]
  - Intentional product misuse [Unknown]
  - Seizure [Not Recovered/Not Resolved]

NARRATIVE: CASE EVENT DATE: 20190101
